FAERS Safety Report 4327854-1 (Version None)
Quarter: 2004Q1

REPORT INFORMATION
  Report Type: 
  Country: None (occurrence: None)
  Receive Date: 20040325
  Receipt Date: 20040315
  Transmission Date: 20041129
  Serious: No
  Sender: FDA-Public Use
  Company Number: 2004UW04935

PATIENT
  Age: 73 Year
  Sex: Male

DRUGS (14)
  1. CASODEX [Suspect]
     Dosage: 50 MG BID PO
     Route: 048
  2. ACETAMINOPHEN [Concomitant]
  3. FAMOTIDINE [Concomitant]
  4. ZOLOFT [Concomitant]
  5. VITAMIN E [Concomitant]
  6. MULTIVITAMINS PLUS IRON [Concomitant]
  7. LUPRON [Concomitant]
  8. IMOVANE [Concomitant]
  9. HALCION [Concomitant]
  10. CYTADREN [Concomitant]
  11. ASPIRIN [Concomitant]
  12. CALCIUM [Concomitant]
  13. CORTEF [Concomitant]
  14. BETACAROTENE [Concomitant]

REACTIONS (4)
  - CONDITION AGGRAVATED [None]
  - CONTUSION [None]
  - EPISTAXIS [None]
  - EYE HAEMORRHAGE [None]
